FAERS Safety Report 25928433 (Version 1)
Quarter: 2025Q4

REPORT INFORMATION
  Report Type: Report from Study
  Country: EU (occurrence: EU)
  Receive Date: 20251016
  Receipt Date: 20251016
  Transmission Date: 20260118
  Serious: Yes (Death, Hospitalization)
  Sender: TEVA
  Company Number: EU-TEVA-100#05#2007-01894

PATIENT
  Age: 66 Year
  Sex: Male

DRUGS (10)
  1. BISOPROLOL [Suspect]
     Active Substance: BISOPROLOL
     Indication: Cardiac failure congestive
     Dosage: DOSAGE TEXT: 10 MG
     Route: 048
     Dates: start: 20030730
  2. ENALAPRIL [Suspect]
     Active Substance: ENALAPRIL
     Indication: Cardiac failure congestive
     Dosage: DOSAGE TEXT: 5 MG
     Route: 048
     Dates: start: 20040202
  3. THEOPHYLLINE [Concomitant]
     Active Substance: THEOPHYLLINE
     Indication: Product used for unknown indication
     Dosage: DOSAGE TEXT: 500 MG
     Route: 048
     Dates: start: 20030730
  4. ASPIRIN [Concomitant]
     Active Substance: ASPIRIN
     Indication: Product used for unknown indication
     Dosage: DOSAGE TEXT: 75 MG
     Route: 048
     Dates: start: 20030730
  5. POTASSIUM CHLORIDE [Concomitant]
     Active Substance: POTASSIUM CHLORIDE
     Indication: Product used for unknown indication
     Dosage: DOSAGE TEXT: 1500 MG
     Route: 048
     Dates: start: 20030730
  6. HYDROCORTISONE [Concomitant]
     Active Substance: HYDROCORTISONE
     Indication: Product used for unknown indication
     Dosage: DOSAGE TEXT: 100 MG
     Route: 042
     Dates: start: 20040120
  7. INOSINE PRANOBEX [Concomitant]
     Active Substance: INOSINE PRANOBEX
     Indication: Product used for unknown indication
     Dosage: DOSAGE TEXT: 4000 MG
     Route: 048
     Dates: start: 20040124
  8. RANITIDINE [Concomitant]
     Active Substance: RANITIDINE
     Indication: Product used for unknown indication
     Dosage: DOSAGE TEXT: UNKNOWN
     Route: 048
     Dates: start: 20040120
  9. AMILORIDE [Concomitant]
     Active Substance: AMILORIDE
     Indication: Product used for unknown indication
     Dosage: DOSAGE TEXT: 5 MG
     Route: 048
     Dates: start: 20030730, end: 20040203
  10. HYDROCHLOROTHIAZIDE [Concomitant]
     Active Substance: HYDROCHLOROTHIAZIDE
     Indication: Product used for unknown indication
     Dosage: DOSAGE TEXT: 50 MG
     Route: 048
     Dates: start: 20030730, end: 20040203

REACTIONS (3)
  - Cardiac failure [Fatal]
  - Pneumonia [Fatal]
  - Bronchospasm [Fatal]

NARRATIVE: CASE EVENT DATE: 20040204
